FAERS Safety Report 9325449 (Version 2)
Quarter: 2013Q3

REPORT INFORMATION
  Report Type: Spontaneous
  Country: US (occurrence: US)
  Receive Date: 20130604
  Receipt Date: 20130708
  Transmission Date: 20140515
  Serious: No
  Sender: FDA-Public Use
  Company Number: US-009507513-1306USA000327

PATIENT
  Age: 51 Year
  Sex: Female

DRUGS (2)
  1. NASONEX [Suspect]
     Indication: SEASONAL ALLERGY
     Dosage: 50 MICROGRAM/ TWO SPRAYS IN EACH NOSTRIL
     Route: 045
  2. NASONEX [Suspect]
     Dosage: 50 MICROGRAM/ TWO SPRAYS IN EACH NOSTRIL
     Route: 045

REACTIONS (2)
  - Product quality issue [Unknown]
  - Infection [Unknown]
